FAERS Safety Report 24789930 (Version 1)
Quarter: 2024Q4

REPORT INFORMATION
  Report Type: Report from Study
  Country: US (occurrence: US)
  Receive Date: 20241230
  Receipt Date: 20241230
  Transmission Date: 20250114
  Serious: Yes (Other)
  Sender: TAKEDA
  Company Number: US-TAKEDA-2024TUS127437

PATIENT
  Age: 72 Year
  Sex: Female

DRUGS (3)
  1. MARIBAVIR [Suspect]
     Active Substance: MARIBAVIR
     Indication: Uterine leiomyoma
     Dosage: 400 MILLIGRAM, BID
     Dates: start: 20230628
  2. MARIBAVIR [Suspect]
     Active Substance: MARIBAVIR
     Indication: Autologous haematopoietic stem cell transplant
  3. MARIBAVIR [Suspect]
     Active Substance: MARIBAVIR
     Indication: Lymphocyte adoptive therapy

REACTIONS (2)
  - Neoplasm malignant [Unknown]
  - Product use in unapproved indication [Unknown]

NARRATIVE: CASE EVENT DATE: 20230628
